FAERS Safety Report 25537687 (Version 2)
Quarter: 2025Q3

REPORT INFORMATION
  Report Type: Spontaneous
  Country: RU (occurrence: RU)
  Receive Date: 20250710
  Receipt Date: 20250805
  Transmission Date: 20251020
  Serious: Yes (Other)
  Sender: TEVA
  Company Number: RU-TEVA-VS-3348908

PATIENT
  Age: 34 Year
  Sex: Female

DRUGS (5)
  1. ETOPOSIDE [Suspect]
     Active Substance: ETOPOSIDE
     Indication: Plasmablastic lymphoma
     Route: 037
  2. VINCRISTINE [Suspect]
     Active Substance: VINCRISTINE
     Indication: Plasmablastic lymphoma
     Route: 037
  3. CYCLOPHOSPHAMIDE [Suspect]
     Active Substance: CYCLOPHOSPHAMIDE
     Indication: Plasmablastic lymphoma
     Route: 037
  4. PREDNISONE [Suspect]
     Active Substance: PREDNISONE
     Indication: Plasmablastic lymphoma
     Route: 037
  5. DOXORUBICIN [Suspect]
     Active Substance: DOXORUBICIN
     Indication: Plasmablastic lymphoma
     Route: 037

REACTIONS (5)
  - Cytotoxic lesions of corpus callosum [Recovering/Resolving]
  - Enterocolitis [Recovering/Resolving]
  - Nervous system disorder [Recovering/Resolving]
  - Febrile neutropenia [Recovering/Resolving]
  - Electrolyte imbalance [Recovering/Resolving]
